FAERS Safety Report 22537811 (Version 1)
Quarter: 2023Q2

REPORT INFORMATION
  Report Type: Report from Study
  Country: CA (occurrence: CA)
  Receive Date: 20230608
  Receipt Date: 20230608
  Transmission Date: 20230721
  Serious: Yes (Other)
  Sender: FDA-Public Use
  Company Number: CA-GILEAD-2023-0622188

PATIENT
  Sex: Female

DRUGS (6)
  1. SACITUZUMAB GOVITECAN-HZIY [Suspect]
     Active Substance: SACITUZUMAB GOVITECAN-HZIY
     Indication: Triple negative breast cancer
     Dosage: 870 MG
     Route: 042
     Dates: start: 20230203
  2. SACITUZUMAB GOVITECAN-HZIY [Suspect]
     Active Substance: SACITUZUMAB GOVITECAN-HZIY
     Dosage: 870 MG, UNSPECIFIED CYCLE, D1D8
     Route: 042
     Dates: start: 20230413, end: 20230420
  3. SACITUZUMAB GOVITECAN-HZIY [Suspect]
     Active Substance: SACITUZUMAB GOVITECAN-HZIY
     Dosage: 940 MG
     Route: 042
     Dates: start: 20230503
  4. CAPECITABINE [Concomitant]
     Active Substance: CAPECITABINE
  5. ACT [ACETYLCYSTEINE] [Concomitant]
  6. CARBOPLATIN\GEMCITABINE [Concomitant]
     Active Substance: CARBOPLATIN\GEMCITABINE

REACTIONS (6)
  - Disease progression [Unknown]
  - Malaise [Unknown]
  - Weight fluctuation [Unknown]
  - Inappropriate schedule of product administration [Unknown]
  - Herpes zoster [Not Recovered/Not Resolved]
  - Inappropriate schedule of product administration [Unknown]
